FAERS Safety Report 5726469-8 (Version None)
Quarter: 2008Q2

REPORT INFORMATION
  Report Type: 
  Country: None (occurrence: None)
  Receive Date: 20080502
  Receipt Date: 20080429
  Transmission Date: 20081010
  Serious: Yes (Hospitalization)
  Sender: FDA-Public Use
  Company Number: B0518886A

PATIENT
  Age: 81 Year
  Sex: Male

DRUGS (19)
  1. AUGMENTIN [Suspect]
     Route: 048
     Dates: start: 20080228, end: 20080305
  2. AVANDAMET [Concomitant]
     Indication: DRUG USE FOR UNKNOWN INDICATION
     Dosage: 16MG PER DAY
     Route: 048
     Dates: end: 20080226
  3. AUGMENTIN '125' [Concomitant]
     Route: 042
     Dates: start: 20080227, end: 20080227
  4. AVIDART [Concomitant]
     Indication: DRUG USE FOR UNKNOWN INDICATION
     Dosage: .5MG TWICE PER DAY
     Route: 048
     Dates: end: 20080226
  5. SINEMET [Concomitant]
     Indication: DRUG USE FOR UNKNOWN INDICATION
     Route: 048
     Dates: end: 20080227
  6. BESITRAN [Concomitant]
     Indication: DRUG USE FOR UNKNOWN INDICATION
     Dosage: 100MG TWICE PER DAY
     Route: 048
     Dates: end: 20080226
  7. LORAZEPAM [Concomitant]
     Indication: DRUG USE FOR UNKNOWN INDICATION
     Dosage: 1MG PER DAY
     Route: 048
     Dates: start: 20080227
  8. SEGURIL [Concomitant]
     Indication: DRUG USE FOR UNKNOWN INDICATION
     Dosage: 40MG PER DAY
     Route: 048
  9. ASTONIN [Concomitant]
     Indication: DRUG USE FOR UNKNOWN INDICATION
     Dosage: .1MG TWICE PER DAY
     Route: 048
  10. COZAAR [Concomitant]
     Indication: DRUG USE FOR UNKNOWN INDICATION
     Dosage: 50MG PER DAY
     Route: 048
     Dates: start: 20080227
  11. ORFIDAL [Concomitant]
     Indication: DRUG USE FOR UNKNOWN INDICATION
     Dosage: 1MG PER DAY
     Route: 048
     Dates: end: 20080226
  12. PREVENCOR [Concomitant]
     Indication: DRUG USE FOR UNKNOWN INDICATION
     Dosage: 20MG PER DAY
     Route: 048
     Dates: start: 20080227
  13. EXELON [Concomitant]
     Indication: DRUG USE FOR UNKNOWN INDICATION
     Dosage: 3MG TWICE PER DAY
     Route: 048
     Dates: start: 20080227
  14. MAGNUROL [Concomitant]
     Indication: DRUG USE FOR UNKNOWN INDICATION
     Dosage: 5MG TWICE PER DAY
     Route: 048
  15. AREMIS [Concomitant]
     Indication: DRUG USE FOR UNKNOWN INDICATION
     Dosage: 100MG TWICE PER DAY
     Route: 048
     Dates: start: 20080227
  16. TEVETEN [Concomitant]
     Indication: DRUG USE FOR UNKNOWN INDICATION
     Dosage: 600MG PER DAY
     Route: 048
     Dates: end: 20080226
  17. RIVASTIGMINE TARTRATE [Concomitant]
     Indication: DRUG USE FOR UNKNOWN INDICATION
     Dosage: 3MG TWICE PER DAY
     Route: 048
     Dates: end: 20080226
  18. ZARATOR [Concomitant]
     Indication: DRUG USE FOR UNKNOWN INDICATION
     Dosage: 20MG PER DAY
     Route: 048
     Dates: end: 20080226
  19. HIDROALTESONA [Concomitant]
     Indication: DRUG USE FOR UNKNOWN INDICATION
     Dosage: 40MG PER DAY
     Route: 048

REACTIONS (2)
  - NEPHRITIS INTERSTITIAL [None]
  - RENAL FAILURE ACUTE [None]
